FAERS Safety Report 7060257-8 (Version None)
Quarter: 2010Q4

REPORT INFORMATION
  Report Type: 
  Country: None (occurrence: None)
  Receive Date: 20101025
  Receipt Date: 20101021
  Transmission Date: 20110411
  Serious: Yes (Hospitalization)
  Sender: FDA-Public Use
  Company Number: US-BRISTOL-MYERS SQUIBB COMPANY-15258494

PATIENT
  Age: 57 Year
  Sex: Female
  Weight: 55 kg

DRUGS (16)
  1. PACLITAXEL [Suspect]
     Indication: METASTATIC MALIGNANT MELANOMA
     Dosage: ON DAY 1,8 AND 15 EVERY 28 DAYS.
     Route: 042
     Dates: start: 20100813
  2. BUPROPION [Concomitant]
  3. KYTRIL [Concomitant]
  4. LIDOCAINE HYDROCHLORIDE [Concomitant]
  5. LORATADINE [Concomitant]
  6. MEGACE [Concomitant]
  7. OXYCONTIN [Concomitant]
  8. POTASSIUM CHLORIDE [Concomitant]
  9. SIMVASTATIN [Concomitant]
  10. DOCUSATE CALCIUM [Concomitant]
  11. TRAZODONE HCL [Concomitant]
     Dates: start: 20070715
  12. VITAMIN B-12 [Concomitant]
     Dates: start: 20100315
  13. DEXAMETHASONE [Concomitant]
     Dates: start: 20100813, end: 20100813
  14. ACETAMINOPHEN AND HYDROCODONE BITARTRATE [Concomitant]
  15. DIPHENHYDRAMINE HCL [Concomitant]
     Dates: start: 20100813, end: 20100813
  16. RANITIDINE [Concomitant]
     Dates: start: 20100813, end: 20100813

REACTIONS (1)
  - PANIC ATTACK [None]
